FAERS Safety Report 13726158 (Version 1)
Quarter: 2017Q3

REPORT INFORMATION
  Report Type: Spontaneous
  Country: US (occurrence: US)
  Receive Date: 20170707
  Receipt Date: 20170707
  Transmission Date: 20171127
  Serious: Yes (Other)
  Sender: FDA-Public Use
  Company Number: None

PATIENT
  Age: 47 Year
  Sex: Female
  Weight: 81 kg

DRUGS (6)
  1. CAPSAICIN 0.15% [Suspect]
     Active Substance: CAPSAICIN
     Indication: PAIN
     Dosage: 1 TOPICAL; 3-4 TIMES DAILY?
     Route: 061
  2. AMLODIPINE BESYLATE. [Concomitant]
     Active Substance: AMLODIPINE BESYLATE
  3. DAILY D VITAMIN [Concomitant]
  4. LEVOTHYROXINE. [Concomitant]
     Active Substance: LEVOTHYROXINE
  5. FENOFIBRATE. [Concomitant]
     Active Substance: FENOFIBRATE
  6. DAILY VITAMINS [Concomitant]

REACTIONS (7)
  - Expired product administered [None]
  - Wrong technique in product usage process [None]
  - Application site pain [None]
  - Burns first degree [None]
  - Product label confusion [None]
  - Application site burn [None]
  - Chemical burn [None]

NARRATIVE: CASE EVENT DATE: 20170707
